FAERS Safety Report 9317979 (Version 1)
Quarter: 2013Q2

REPORT INFORMATION
  Report Type: Spontaneous
  Country: US (occurrence: US)
  Receive Date: 20130530
  Receipt Date: 20130530
  Transmission Date: 20140414
  Serious: No
  Sender: FDA-Public Use
  Company Number: US-GLAXOSMITHKLINE-A0998825A

PATIENT
  Age: 17 Month
  Sex: 0

DRUGS (1)
  1. VENTOLIN [Suspect]
     Dosage: 2PUFF SIX TIMES PER DAY
     Route: 055

REACTIONS (1)
  - Incorrect dose administered [Unknown]
